FAERS Safety Report 4548825-6 (Version None)
Quarter: 2004Q4

REPORT INFORMATION
  Report Type: 
  Country: None (occurrence: None)
  Receive Date: 20041227
  Receipt Date: 20041007
  Transmission Date: 20050328
  Serious: No
  Sender: FDA-Public Use
  Company Number: 04P-163-0276599-00

PATIENT
  Age: 36 Year
  Sex: Female
  Weight: 42.1845 kg

DRUGS (7)
  1. HUMIRA [Suspect]
     Indication: RHEUMATOID ARTHRITIS
     Dosage: 40 MG, 1 IN 2 WK, SUBCUTANEOUS
     Route: 058
     Dates: start: 20040801
  2. HUMIRA [Suspect]
     Indication: SYSTEMIC LUPUS ERYTHEMATOSUS
     Dosage: 40 MG, 1 IN 2 WK, SUBCUTANEOUS
     Route: 058
     Dates: start: 20040801
  3. NAPROXSYN [Concomitant]
  4. ALPRAZOLAM [Concomitant]
  5. TEMAZEPAM [Concomitant]
  6. OMEPRAZOLE [Concomitant]
  7. MULTIVITAMIN [Concomitant]

REACTIONS (4)
  - INJECTION SITE PAIN [None]
  - INJECTION SITE SWELLING [None]
  - RASH GENERALISED [None]
  - SENSATION OF FOREIGN BODY [None]
